FAERS Safety Report 9615855 (Version 1)
Quarter: 2013Q4

REPORT INFORMATION
  Report Type: Spontaneous
  Country: US (occurrence: US)
  Receive Date: 20131011
  Receipt Date: 20131011
  Transmission Date: 20140711
  Serious: No
  Sender: FDA-Public Use
  Company Number: US-GLAXOSMITHKLINE-A1030351A

PATIENT
  Sex: Male

DRUGS (4)
  1. JALYN [Suspect]
     Indication: POLLAKIURIA
     Dosage: 1CAP PER DAY
     Route: 048
     Dates: start: 20130624, end: 20130629
  2. TOPROL [Concomitant]
  3. AMLODIPINE [Concomitant]
  4. BABY ASPIRIN [Concomitant]

REACTIONS (3)
  - Pruritus [Recovered/Resolved]
  - Breast pain [Recovering/Resolving]
  - Breast tenderness [Recovering/Resolving]
